FAERS Safety Report 19902025 (Version 12)
Quarter: 2022Q4

REPORT INFORMATION
  Report Type: Report from Study
  Country: JP (occurrence: JP)
  Receive Date: 20210929
  Receipt Date: 20221209
  Transmission Date: 20230113
  Serious: Yes (Hospitalization, Other)
  Sender: FDA-Public Use
  Company Number: JP-BRISTOL-MYERS SQUIBB COMPANY-BMS-2021-098374

PATIENT
  Age: 69 Year
  Sex: Male
  Weight: 61.45 kg

DRUGS (7)
  1. YERVOY [Suspect]
     Active Substance: IPILIMUMAB
     Indication: Non-small cell lung cancer recurrent
     Route: 041
     Dates: start: 20210225, end: 20210225
  2. YERVOY [Suspect]
     Active Substance: IPILIMUMAB
     Route: 041
     Dates: start: 20210225, end: 20220112
  3. OPDIVO [Suspect]
     Active Substance: NIVOLUMAB
     Indication: Non-small cell lung cancer recurrent
     Route: 041
     Dates: start: 20210225, end: 20220112
  4. ALIMTA [Suspect]
     Active Substance: PEMETREXED DISODIUM
     Indication: Non-small cell lung cancer recurrent
     Route: 041
     Dates: start: 20210225, end: 20210324
  5. ALIMTA [Suspect]
     Active Substance: PEMETREXED DISODIUM
  6. CARBOPLATIN [Suspect]
     Active Substance: CARBOPLATIN
     Indication: Non-small cell lung cancer recurrent
     Route: 041
     Dates: start: 20210225, end: 20210324
  7. DAPTOMYCIN [Concomitant]
     Active Substance: DAPTOMYCIN
     Indication: Staphylococcal bacteraemia
     Route: 065

REACTIONS (13)
  - Immune-mediated adrenal insufficiency [Unknown]
  - Nausea [Recovered/Resolved]
  - Anaemia [Recovering/Resolving]
  - Oropharyngeal pain [Unknown]
  - Blood pressure decreased [Unknown]
  - Febrile neutropenia [Recovered/Resolved]
  - Staphylococcal bacteraemia [Unknown]
  - Immune-mediated hypothyroidism [Recovering/Resolving]
  - Sjogren^s syndrome [Unknown]
  - Vomiting [Unknown]
  - Rash [Recovering/Resolving]
  - Arthralgia [Unknown]
  - Condition aggravated [Unknown]

NARRATIVE: CASE EVENT DATE: 20210304
